FAERS Safety Report 24456166 (Version 2)
Quarter: 2024Q4

REPORT INFORMATION
  Report Type: Report from Study
  Country: US (occurrence: US)
  Receive Date: 20241017
  Receipt Date: 20241018
  Transmission Date: 20250114
  Serious: No
  Sender: ROCHE
  Company Number: US-ROCHE-3498940

PATIENT
  Age: 65 Year
  Sex: Male

DRUGS (11)
  1. RITUXAN [Suspect]
     Active Substance: RITUXIMAB
     Indication: Rheumatoid arthritis
     Dosage: ON DAY 1 AND DAY 15; 4 500 MG DOSE, THEN ONCE IN EVERY 6 MONTHS
     Route: 041
  2. KLONOPIN [Suspect]
     Active Substance: CLONAZEPAM
     Indication: Anxiety
     Route: 048
  3. LIPITOR [Concomitant]
     Active Substance: ATORVASTATIN CALCIUM
  4. COREG [Concomitant]
     Active Substance: CARVEDILOL
  5. DICLOFENAC [Concomitant]
     Active Substance: DICLOFENAC
  6. EFUDEX [Concomitant]
     Active Substance: FLUOROURACIL
  7. COZAAR [Concomitant]
     Active Substance: LOSARTAN POTASSIUM
  8. MOBIC [Concomitant]
     Active Substance: MELOXICAM
  9. OMEPRAZOLE [Concomitant]
     Active Substance: OMEPRAZOLE
  10. REVATIO [Concomitant]
     Active Substance: SILDENAFIL CITRATE
  11. ULTRAM [Concomitant]
     Active Substance: TRAMADOL HYDROCHLORIDE

REACTIONS (2)
  - Off label use [Unknown]
  - No adverse event [Unknown]
